FAERS Safety Report 22178931 (Version 1)
Quarter: 2023Q2

REPORT INFORMATION
  Report Type: Report from Study
  Country: US (occurrence: US)
  Receive Date: 20230406
  Receipt Date: 20230406
  Transmission Date: 20230722
  Serious: Yes (Other)
  Sender: FDA-Public Use
  Company Number: US-ABBVIE-4280821

PATIENT
  Sex: Female
  Weight: 36.287 kg

DRUGS (17)
  1. HUMIRA [Suspect]
     Active Substance: ADALIMUMAB
     Indication: Colitis ulcerative
     Route: 058
     Dates: start: 20230306
  2. HUMIRA [Suspect]
     Active Substance: ADALIMUMAB
     Route: 058
     Dates: start: 201910, end: 20230206
  3. Calcipotriene and betamethasone Dipropionate (Betamethasone dipropi... [Concomitant]
     Indication: Psoriasis
  4. ONE DAILY WOMEN^S [Concomitant]
     Indication: Product used for unknown indication
  5. Vitamine D3 (Colecalciferol) [Concomitant]
     Indication: Product used for unknown indication
  6. ZINC [Concomitant]
     Active Substance: ZINC
     Indication: Product used for unknown indication
  7. Deep sea premium saline (Sodium chloride) [Concomitant]
     Indication: Product used for unknown indication
  8. Calcium (Calcium lactate) [Concomitant]
     Indication: Product used for unknown indication
     Route: 048
  9. Vitamine E (Tocopheryl acetate) [Concomitant]
     Indication: Product used for unknown indication
  10. Vitamin D3 Ol (Colecalciferol) [Concomitant]
     Indication: Product used for unknown indication
  11. CLEARLAX [Concomitant]
     Active Substance: POLYETHYLENE GLYCOL 3350
     Indication: Product used for unknown indication
  12. Oasis tears (Glycerol) [Concomitant]
     Indication: Product used for unknown indication
  13. Regener (Mometasone furoate) [Concomitant]
     Indication: Product used for unknown indication
     Dosage: OPHTHALMIC SOLUTION
  14. VITAMIN C [Concomitant]
     Active Substance: ASCORBIC ACID
     Indication: Product used for unknown indication
  15. Ocusoft vms (Ascorbic acid;Copper;Retinol;Selenium;Tocopherol;Zinc) [Concomitant]
     Indication: Product used for unknown indication
  16. Elderberry (Sambucus nigra fruit) [Concomitant]
     Indication: Product used for unknown indication
     Dosage: 500 MG- 1 TABLESPOON
  17. Clobetasol Proprionate (Clobetasol propionate) [Concomitant]
     Indication: Psoriasis
     Dosage: TWICE DAILY AS NEEDED

REACTIONS (3)
  - Skin disorder [Unknown]
  - Skin burning sensation [Unknown]
  - Therapeutic product effect decreased [Not Recovered/Not Resolved]
